FAERS Safety Report 4819583-2 (Version None)
Quarter: 2005Q4

REPORT INFORMATION
  Report Type: 
  Country: None (occurrence: None)
  Receive Date: 20051102
  Receipt Date: 20051018
  Transmission Date: 20060501
  Serious: Yes (Life-Threatening, Hospitalization)
  Sender: FDA-Public Use
  Company Number: 2005S1007116

PATIENT
  Age: 41 Year
  Sex: Female
  Weight: 106.5953 kg

DRUGS (12)
  1. FENTANYL [Suspect]
     Indication: BACK PAIN
     Dosage: 50 MCG/HR;Q3D;TDER
     Dates: start: 20050201, end: 20050531
  2. TOPAMAX [Suspect]
     Indication: DEPRESSION
     Dosage: 600 MG;QD; PO
     Route: 048
     Dates: start: 20020101
  3. PERCOCET [Suspect]
     Indication: BREAKTHROUGH PAIN
     Dosage: 10 MG;Q6H; PO
     Route: 048
     Dates: start: 20020101, end: 20050531
  4. NEURONTIN [Suspect]
     Dosage: 100 MG;HS
     Dates: start: 20030101, end: 20050601
  5. SIMVASTATIN [Concomitant]
  6. BUPROPION HYDROCHLORIDE [Concomitant]
  7. OXCARBAZEPINE [Concomitant]
  8. CARISOPRODOL [Concomitant]
  9. INDOMETHACIN [Concomitant]
  10. CYANOCOBALAMIN [Concomitant]
  11. PYRIDOXINE HYDROCHLORIDE [Concomitant]
  12. CALCIUM GLUCONATE [Concomitant]

REACTIONS (7)
  - ACCIDENTAL OVERDOSE [None]
  - APNOEA [None]
  - CARDIAC ENZYMES INCREASED [None]
  - CHEST PAIN [None]
  - LOSS OF CONSCIOUSNESS [None]
  - PAIN [None]
  - RESPIRATORY DEPRESSION [None]
